FAERS Safety Report 4349558-1 (Version None)
Quarter: 2004Q1

REPORT INFORMATION
  Report Type: 
  Country: None (occurrence: None)
  Receive Date: 20040329
  Receipt Date: 20031203
  Transmission Date: 20041129
  Serious: No
  Sender: FDA-Public Use
  Company Number: USA031253833

PATIENT
  Age: 24 Year
  Sex: Male

DRUGS (2)
  1. STRATTERA [Suspect]
     Indication: ATTENTION DEFICIT/HYPERACTIVITY DISORDER
     Dosage: 80 MG/DAY
     Dates: start: 20030101
  2. RITALIN [Concomitant]

REACTIONS (5)
  - ANOREXIA [None]
  - IRRITABILITY [None]
  - LIBIDO DECREASED [None]
  - NIGHT SWEATS [None]
  - SEROTONIN SYNDROME [None]
